FAERS Safety Report 7050236-9 (Version None)
Quarter: 2010Q4

REPORT INFORMATION
  Report Type: 
  Country: None (occurrence: None)
  Receive Date: 20101018
  Receipt Date: 20101008
  Transmission Date: 20110411
  Serious: Yes (Hospitalization, Other)
  Sender: FDA-Public Use
  Company Number: US-ASTRAZENECA-2010SE10613

PATIENT
  Age: 56 Year
  Sex: Female
  Weight: 61.5 kg

DRUGS (9)
  1. NEXIUM [Suspect]
     Indication: GASTROOESOPHAGEAL REFLUX DISEASE
     Route: 048
     Dates: start: 20031105
  2. NEXIUM [Suspect]
     Dosage: TWO TIMES DAILY
     Route: 048
  3. NEXIUM [Suspect]
     Route: 048
     Dates: start: 20090301
  4. OMEPRAZOLE [Suspect]
     Indication: OESOPHAGITIS
     Route: 048
  5. ZOCOR [Concomitant]
     Indication: BLOOD CHOLESTEROL
  6. TRAMADOL HCL [Concomitant]
     Indication: PAIN
  7. NEURONTIN [Concomitant]
     Indication: INTRACRANIAL ANEURYSM
  8. KLONOPIN [Concomitant]
  9. ASPIRIN [Concomitant]

REACTIONS (16)
  - ANGIOCENTRIC LYMPHOMA [None]
  - CHEST PAIN [None]
  - DRUG INEFFECTIVE [None]
  - DYSPHAGIA [None]
  - GASTROOESOPHAGEAL REFLUX DISEASE [None]
  - GOITRE [None]
  - HEART VALVE INCOMPETENCE [None]
  - INTRACRANIAL ANEURYSM [None]
  - IRRITABLE BOWEL SYNDROME [None]
  - LARYNGITIS [None]
  - LUNG NEOPLASM [None]
  - OESOPHAGITIS [None]
  - PAIN [None]
  - SUPRAVENTRICULAR TACHYCARDIA [None]
  - THROAT IRRITATION [None]
  - THYROID NEOPLASM [None]
